FAERS Safety Report 7099582-3 (Version None)
Quarter: 2010Q4

REPORT INFORMATION
  Report Type: 
  Country: None (occurrence: None)
  Receive Date: 20101112
  Receipt Date: 20081124
  Transmission Date: 20110411
  Serious: No
  Sender: FDA-Public Use
  Company Number: US-KINGPHARMUSA00001-K200801342

PATIENT
  Age: 60 Year
  Sex: Female
  Weight: 63.492 kg

DRUGS (5)
  1. CYTOMEL [Suspect]
     Indication: THYROID DISORDER
     Dosage: 25 MCG, QD
     Route: 048
     Dates: start: 20080709, end: 20080711
  2. CYTOMEL [Suspect]
     Dosage: 12.5 MG, QD
     Dates: start: 20080712, end: 20080701
  3. MULTI-VITAMINS [Concomitant]
     Indication: SUPPLEMENTATION THERAPY
     Dosage: UNK
     Route: 048
  4. BENADRYL [Concomitant]
     Indication: INSOMNIA
     Dosage: UNK
     Route: 048
  5. OTHER ANTI-ASTHMATICS, INHALANTS [Concomitant]
     Indication: ASTHMA
     Dosage: UNK

REACTIONS (2)
  - MIGRAINE [None]
  - NAUSEA [None]
